FAERS Safety Report 6072874-2 (Version None)
Quarter: 2009Q1

REPORT INFORMATION
  Report Type: 
  Country: None (occurrence: None)
  Receive Date: 20090205
  Receipt Date: 20090127
  Transmission Date: 20090719
  Serious: Yes (Hospitalization)
  Sender: FDA-Public Use
  Company Number: 2009-190453-NL

PATIENT
  Age: 50 Year
  Sex: Male

DRUGS (12)
  1. MIRTAZAPINE [Suspect]
     Indication: DEPRESSION
     Dosage: 45 MG QD ORAL
     Route: 048
     Dates: start: 20070901, end: 20080220
  2. TEMOZOLOMIDE [Suspect]
     Indication: BRAIN NEOPLASM
     Dosage: 120 MG QD ORAL
     Route: 048
     Dates: start: 20071218, end: 20071222
  3. TEMOZOLOMIDE [Suspect]
     Indication: BRAIN NEOPLASM
     Dosage: 120 MG QD ORAL
     Route: 048
     Dates: start: 20080110, end: 20080220
  4. TRAMADOL HCL [Suspect]
     Indication: PAIN
     Dosage: 1 DF QD ORAL
     Route: 048
     Dates: start: 20070901, end: 20080220
  5. TRAMADOL HYDROCHLORIDE [Suspect]
     Indication: PAIN
     Dosage: 200 MG QD ORAL
     Route: 048
     Dates: start: 20070901, end: 20080220
  6. METHYLPREDNISOLONE 4MG TAB [Suspect]
     Indication: BRAIN NEOPLASM
     Dosage: 100 MG QD/50 MG QD ORAL
     Route: 048
     Dates: start: 20071109, end: 20071228
  7. METHYLPREDNISOLONE 4MG TAB [Suspect]
     Indication: BRAIN NEOPLASM
     Dosage: 100 MG QD/50 MG QD ORAL
     Route: 048
     Dates: start: 20071229, end: 20080221
  8. BROMAZEPAM [Suspect]
     Indication: ANXIETY
     Dosage: 0.25 DF BID ORAL
     Route: 048
     Dates: start: 20070901, end: 20080220
  9. ESOMEPRAZOLE MAGNESIUM [Suspect]
     Dosage: ORAL
     Route: 048
     Dates: start: 20070901, end: 20080220
  10. LEVETIRACETAM [Suspect]
     Indication: EPILEPSY
     Dosage: 1000 MG QD ORAL
     Route: 048
     Dates: start: 20070501, end: 20080222
  11. LOPERAMIDE HYDROCHLORIDE [Concomitant]
  12. RHINUREFLEX [Concomitant]

REACTIONS (6)
  - BLOOD ALKALINE PHOSPHATASE INCREASED [None]
  - CHOLESTASIS [None]
  - DRUG INEFFECTIVE [None]
  - GAMMA-GLUTAMYLTRANSFERASE INCREASED [None]
  - PALMAR-PLANTAR ERYTHRODYSAESTHESIA SYNDROME [None]
  - STEVENS-JOHNSON SYNDROME [None]
